FAERS Safety Report 23178437 (Version 2)
Quarter: 2023Q4

REPORT INFORMATION
  Report Type: Report from Study
  Country: CA (occurrence: None)
  Receive Date: 20231113
  Receipt Date: 20231117
  Transmission Date: 20240110
  Serious: Yes (Hospitalization, Other)
  Sender: FDA-Public Use
  Company Number: 2023A257673

PATIENT
  Age: 27488 Day
  Sex: Male

DRUGS (8)
  1. FASENRA [Suspect]
     Active Substance: BENRALIZUMAB
     Indication: Asthma
     Route: 058
     Dates: start: 20190523
  2. OXYGEN [Concomitant]
     Active Substance: OXYGEN
     Dosage: STATUS: ONGOING
  3. PREDNISONE [Concomitant]
     Active Substance: PREDNISONE
     Dosage: STATUS: ONGOING
  4. ASMANEX [Concomitant]
     Active Substance: MOMETASONE FUROATE
     Dosage: STATUS: ONGOING
  5. IPRATROPIUM [Concomitant]
     Active Substance: IPRATROPIUM
     Dosage: STATUS: ONGOING
  6. ALBUTEROL [Concomitant]
     Active Substance: ALBUTEROL
     Dosage: STATUS: ONGOING
  7. VENTOLIN [Concomitant]
     Active Substance: ALBUTEROL SULFATE
     Dosage: STATUS: ONGOING
  8. OLODATEROL-TIOTROPIUM [Concomitant]
     Dosage: STATUS: ONGOING

REACTIONS (1)
  - Sepsis [Recovering/Resolving]
